FAERS Safety Report 15258201 (Version 1)
Quarter: 2018Q3

REPORT INFORMATION
  Report Type: Spontaneous
  Country: DK (occurrence: DK)
  Receive Date: 20180809
  Receipt Date: 20180809
  Transmission Date: 20181010
  Serious: Yes (Death)
  Sender: FDA-Public Use
  Company Number: DK-B.I. PHARMACEUTICALS,INC./RIDGEFIELD-2018-12-002724

PATIENT
  Age: 83 Year
  Sex: Male

DRUGS (10)
  1. SPIRIVA [Concomitant]
     Active Substance: TIOTROPIUM BROMIDE MONOHYDRATE
     Indication: CHRONIC OBSTRUCTIVE PULMONARY DISEASE
     Dosage: STYRKE: 18 ?G.
     Route: 055
     Dates: start: 20151207
  2. SYMBICORT [Concomitant]
     Active Substance: BUDESONIDE\FORMOTEROL FUMARATE DIHYDRATE
     Indication: CHRONIC OBSTRUCTIVE PULMONARY DISEASE
     Dosage: STYRKE: 9 + 320 ?G/DOSIS.
     Route: 055
     Dates: start: 20131210
  3. SPIRON [Concomitant]
     Indication: DIURETIC THERAPY
     Dosage: STYRKE: 25 MG.
     Route: 048
     Dates: start: 20180418
  4. PECTYL [Concomitant]
     Indication: ANTITUSSIVE THERAPY
     Dosage: STYRKE: 2,7 + 1,8 MG/ML.
     Route: 048
     Dates: start: 20180511
  5. KALEORID [Concomitant]
     Active Substance: POTASSIUM CHLORIDE
     Indication: MINERAL SUPPLEMENTATION
     Dosage: STYRKE: 750 MG.
     Route: 048
     Dates: start: 20161109
  6. ANCOZAN [Concomitant]
     Active Substance: LOSARTAN POTASSIUM
     Indication: HYPERTENSION
     Dosage: STYRKE: 50 MG.
     Route: 048
     Dates: start: 20160629
  7. CODEINE [Concomitant]
     Active Substance: CODEINE
     Indication: PAIN
     Dosage: STYRKE: 25 MG.
     Route: 048
  8. FURIX [Concomitant]
     Active Substance: FUROSEMIDE
     Indication: DIURETIC THERAPY
     Dosage: STYRKE: 40 MG.
     Route: 048
     Dates: start: 20161109
  9. BRICANYL [Concomitant]
     Active Substance: TERBUTALINE SULFATE
     Indication: CHRONIC OBSTRUCTIVE PULMONARY DISEASE
     Dosage: DOSIS: 1 SUG EFTER BEHOV, VED ANFALD. STYRKE: 0,5 MG/DOSIS.
     Route: 055
     Dates: start: 20131008
  10. PRADAXA [Suspect]
     Active Substance: DABIGATRAN ETEXILATE MESYLATE
     Indication: THROMBOSIS PROPHYLAXIS
     Dosage: STYRKE: 110 MG.
     Route: 048
     Dates: start: 20160626, end: 20180721

REACTIONS (9)
  - Faeces discoloured [Unknown]
  - Haematemesis [Unknown]
  - Gastrointestinal haemorrhage [Fatal]
  - Hypovolaemia [Not Recovered/Not Resolved]
  - International normalised ratio increased [Unknown]
  - Transfusion [Unknown]
  - Toxicity to various agents [Fatal]
  - Activated partial thromboplastin time prolonged [Unknown]
  - Coagulopathy [Fatal]

NARRATIVE: CASE EVENT DATE: 201807
